FAERS Safety Report 8901644 (Version 1)
Quarter: 2012Q4

REPORT INFORMATION
  Report Type: Spontaneous
  Country: US (occurrence: None)
  Receive Date: 20121108
  Receipt Date: 20121108
  Transmission Date: 20130627
  Serious: No
  Sender: FDA-Public Use
  Company Number: None

PATIENT
  Sex: Male

DRUGS (1)
  1. DEXTROAMPHETAMINE [Suspect]
     Indication: ADD
     Dosage: 20MG ER cap qid PO
     Route: 048
     Dates: start: 20121018, end: 20121107

REACTIONS (2)
  - Drug effect decreased [None]
  - Product substitution issue [None]
